FAERS Safety Report 8644885 (Version 5)
Quarter: 2012Q4

REPORT INFORMATION
  Report Type: 
  Country: US (occurrence: US)
  Receive Date: 20120702
  Receipt Date: 20121022
  Transmission Date: 20130627
  Serious: Yes (Other)
  Sender: FDA-Public Use
  Company Number: US-PFIZER INC-2012154064

PATIENT
  Age: 74 Year
  Sex: Female
  Weight: 72.56 kg

DRUGS (14)
  1. NEURONTIN [Suspect]
     Indication: SLEEP DISORDER
     Dosage: 400 mg, UNK
     Route: 048
     Dates: start: 20120607
  2. NEURONTIN [Suspect]
     Dosage: UNK
     Dates: start: 201206
  3. NEURONTIN [Suspect]
     Dosage: 600 mg (200mg at 8:30am, 200mg at 12:30pm and 200mg at 4:30pm) during the day and 2800 at night
     Route: 048
  4. GABAPENTIN [Suspect]
     Indication: SLEEP DISORDER
     Dosage: 5600 mg, daily (taking two 400mg three times during the day and four 400mg interval of 15 minutes)
     Route: 048
     Dates: start: 201207
  5. GABAPENTIN [Suspect]
     Indication: DEPRESSION
     Dosage: 3200 mg, 1x/day
     Route: 048
  6. GABAPENTIN [Suspect]
     Indication: SLEEP DISORDER
  7. PAXIL CR [Concomitant]
     Dosage: 37.5 mg, 1x/day
  8. LITHIUM [Concomitant]
     Dosage: UNK, 1x/day
  9. KLONOPIN [Concomitant]
     Dosage: 0.25 mg, 1x/day
     Dates: end: 201207
  10. SYNTHROID [Concomitant]
     Dosage: UNK, 1x/day
  11. NORVASC [Concomitant]
     Indication: HYPERTENSION
     Dosage: UNK, 1x/day
  12. ZOLOFT [Concomitant]
     Dosage: 50 mg, 1x/day, Daily
  13. ASPIRIN [Concomitant]
     Dosage: UNK
  14. LITHOBID [Concomitant]
     Dosage: UNK

REACTIONS (15)
  - Depression [Not Recovered/Not Resolved]
  - Abdominal tenderness [Unknown]
  - Somnolence [Not Recovered/Not Resolved]
  - Nervousness [Not Recovered/Not Resolved]
  - Gastrointestinal disorder [Unknown]
  - Oral pain [Unknown]
  - Drug ineffective for unapproved indication [Unknown]
  - Overdose [Unknown]
  - Off label use [Unknown]
  - Tremor [Unknown]
  - Abdominal distension [Unknown]
  - Flatulence [Unknown]
  - Dyspepsia [Unknown]
  - Overdose [Unknown]
  - Malaise [Unknown]
